FAERS Safety Report 7594073-5 (Version None)
Quarter: 2011Q3

REPORT INFORMATION
  Report Type: 
  Country: None (occurrence: None)
  Receive Date: 20110706
  Receipt Date: 20110630
  Transmission Date: 20111222
  Serious: Yes (Hospitalization)
  Sender: FDA-Public Use
  Company Number: AT-CEPHALON-2011003080

PATIENT
  Sex: Male

DRUGS (6)
  1. BENDAMUSTINE HCL [Suspect]
     Indication: NON-HODGKIN'S LYMPHOMA
     Route: 042
     Dates: start: 20100715, end: 20101216
  2. TRITACE [Concomitant]
     Dates: end: 20101201
  3. LOVENOX [Concomitant]
     Dates: start: 20100701
  4. MOVIPREP [Concomitant]
     Dates: start: 20100909, end: 20100101
  5. ALLOPURINOL [Concomitant]
  6. RITUXIMAB [Suspect]
     Indication: NON-HODGKIN'S LYMPHOMA
     Route: 042
     Dates: start: 20100715, end: 20101202

REACTIONS (2)
  - PULMONARY OEDEMA [None]
  - ACUTE MYOCARDIAL INFARCTION [None]
